FAERS Safety Report 7496108-7 (Version None)
Quarter: 2011Q2

REPORT INFORMATION
  Report Type: 
  Country: None (occurrence: None)
  Receive Date: 20110523
  Receipt Date: 20110509
  Transmission Date: 20111010
  Serious: Yes (Hospitalization, Other)
  Sender: FDA-Public Use
  Company Number: PHHY2011PL30431

PATIENT
  Sex: Female
  Weight: 76 kg

DRUGS (1)
  1. EXTAVIA [Suspect]
     Indication: MULTIPLE SCLEROSIS
     Dosage: 250 UG/ML, UNK
     Route: 058
     Dates: start: 20110216, end: 20110406

REACTIONS (5)
  - TYPE 1 DIABETES MELLITUS [None]
  - BLOOD GLUCOSE ABNORMAL [None]
  - HEADACHE [None]
  - BLOOD GLUCOSE DECREASED [None]
  - SKIN REACTION [None]
